FAERS Safety Report 5916729-X (Version None)
Quarter: 2008Q4

REPORT INFORMATION
  Report Type: 
  Country: None (occurrence: None)
  Receive Date: 20081013
  Receipt Date: 20081007
  Transmission Date: 20090506
  Serious: Yes (Other)
  Sender: FDA-Public Use
  Company Number: B0541197A

PATIENT
  Sex: Male

DRUGS (1)
  1. NIQUITIN CQ GUM 2MG [Suspect]
     Indication: DRUG USE FOR UNKNOWN INDICATION
     Dosage: 24GUM PER DAY
     Route: 002

REACTIONS (5)
  - DIABETES MELLITUS [None]
  - DRY MOUTH [None]
  - INCORRECT DRUG ADMINISTRATION DURATION [None]
  - OVERDOSE [None]
  - REGURGITATION [None]
